FAERS Safety Report 6439691-2 (Version None)
Quarter: 2009Q4

REPORT INFORMATION
  Report Type: 
  Country: None (occurrence: None)
  Receive Date: 20091113
  Receipt Date: 20091104
  Transmission Date: 20100525
  Serious: Yes (Hospitalization)
  Sender: FDA-Public Use
  Company Number: GXKR2009IT12232

PATIENT
  Sex: Male

DRUGS (2)
  1. AMOXICILLIN TRIHYDRATE [Suspect]
     Route: 065
  2. NIMESULIDE (NGX) [Suspect]
     Route: 065

REACTIONS (3)
  - ERYTHEMA [None]
  - OEDEMA [None]
  - PARAESTHESIA [None]
